FAERS Safety Report 9299068 (Version 2)
Quarter: 2013Q3

REPORT INFORMATION
  Report Type: Spontaneous
  Country: FR (occurrence: FR)
  Receive Date: 20130520
  Receipt Date: 20130830
  Transmission Date: 20140515
  Serious: Yes (Life-Threatening)
  Sender: FDA-Public Use
  Company Number: FR-PFIZER INC-2013151605

PATIENT
  Age: 71 Year
  Sex: Male

DRUGS (8)
  1. TAHOR [Suspect]
     Indication: DYSLIPIDAEMIA
     Dosage: 20 MG, 1X/DAY
     Route: 048
     Dates: end: 20130416
  2. FUCIDINE [Interacting]
     Indication: DEVICE RELATED INFECTION
     Dosage: 500 MG, 3X/DAY
     Route: 048
     Dates: start: 201211, end: 20130417
  3. ORBENINE [Concomitant]
     Indication: DEVICE RELATED INFECTION
     Dosage: 1 G, 3X/DAY
     Route: 048
     Dates: start: 20121119, end: 20130421
  4. KARDEGIC [Concomitant]
     Dosage: 75 MG, 1X/DAY
     Route: 048
     Dates: end: 20130424
  5. LASILIX [Concomitant]
     Dosage: 250 MG, 2X/DAY
     Route: 048
     Dates: start: 201212
  6. INEXIUM [Concomitant]
     Dosage: 40 MG, 1X/DAY
     Route: 048
  7. PLAVIX [Concomitant]
     Dosage: 75 MG, 1X/DAY
     Route: 048
     Dates: start: 201212
  8. KREDEX [Concomitant]
     Dosage: 12.5 MG, 2X/DAY
     Route: 048
     Dates: start: 201212

REACTIONS (3)
  - Rhabdomyolysis [Recovered/Resolved]
  - Quadriparesis [Recovered/Resolved with Sequelae]
  - Drug interaction [Recovered/Resolved]
